FAERS Safety Report 11293594 (Version 1)
Quarter: 2015Q3

REPORT INFORMATION
  Report Type: Spontaneous
  Country: IT (occurrence: IT)
  Receive Date: 20150722
  Receipt Date: 20150722
  Transmission Date: 20151125
  Serious: Yes (Other)
  Sender: FDA-Public Use
  Company Number: IT-TAKEDA-2015TUS009477

PATIENT

DRUGS (1)
  1. COLCHICINE. [Suspect]
     Active Substance: COLCHICINE
     Indication: POSTPERICARDIOTOMY SYNDROME
     Dosage: UNK
     Route: 048

REACTIONS (2)
  - Hepatotoxicity [Unknown]
  - Product use issue [Recovered/Resolved]
